FAERS Safety Report 7547301-6 (Version None)
Quarter: 2011Q2

REPORT INFORMATION
  Report Type: 
  Country: None (occurrence: None)
  Receive Date: 20110614
  Receipt Date: 20081001
  Transmission Date: 20111010
  Serious: Yes (Death)
  Sender: FDA-Public Use
  Company Number: US-BAYER-2011-010701

PATIENT
  Age: 73 Year
  Sex: Female
  Weight: 84.5 kg

DRUGS (19)
  1. DIOVAN [Concomitant]
     Indication: HYPERTENSION
     Dosage: 325 MG, QD
     Route: 048
  2. TRASYLOL [Suspect]
     Indication: AORTIC VALVE REPLACEMENT
  3. HUMULIN R [Concomitant]
     Indication: DIABETES MELLITUS
     Dosage: 5 UNITS EVERY AM 20 UNITS EVERY P.M
     Route: 058
  4. PERCOCET [Concomitant]
     Indication: CHEST PAIN
  5. PREMARIN [Concomitant]
     Indication: HORMONE THERAPY
     Dosage: 0.625 MG, QD
     Route: 048
  6. LOPID [Concomitant]
     Indication: HYPERCHOLESTEROLAEMIA
     Dosage: 600 MG, QD
     Route: 048
  7. LOPID [Concomitant]
     Indication: HYPERTRIGLYCERIDAEMIA
  8. LASIX [Concomitant]
     Indication: DIURETIC THERAPY
  9. TRASYLOL [Suspect]
     Indication: SURGERY
     Dosage: 200ML
     Route: 042
     Dates: start: 20040817
  10. NORVASC [Concomitant]
     Indication: HYPERTENSION
     Dosage: 2.5 MG, QD
     Route: 048
  11. LISINOPRIL [Concomitant]
     Indication: HYPERTENSION
     Dosage: 2.5 MG, QD
     Route: 048
  12. COUMADIN [Concomitant]
     Indication: ATRIAL FIBRILLATION
  13. METOPROLOL [Concomitant]
  14. ELAVIL [Concomitant]
     Indication: DEPRESSION
     Dosage: 5 MG, TID
     Route: 048
  15. HEPARIN [Concomitant]
     Indication: ATRIAL FIBRILLATION
     Dosage: WEIGHT-BASE PROTOCOL
     Route: 042
     Dates: start: 20040817
  16. TOPROL-XL [Concomitant]
     Dosage: 25 MG, QD
     Route: 048
  17. SOLU-MEDROL [Concomitant]
     Indication: CHRONIC OBSTRUCTIVE PULMONARY DISEASE
     Dosage: 40 MG, QID
     Route: 042
  18. HUMULIN N [Concomitant]
     Indication: DIABETES MELLITUS
     Dosage: 40 UNITS EVERY AM 50 UNITS EVERY PM
     Route: 058
  19. DIGOXIN [Concomitant]
     Indication: ATRIAL FIBRILLATION
     Dosage: 0.125 MG, QD
     Route: 048

REACTIONS (6)
  - INJURY [None]
  - EMOTIONAL DISTRESS [None]
  - DEATH [None]
  - ANXIETY [None]
  - STRESS [None]
  - PAIN [None]
